FAERS Safety Report 9834667 (Version 1)
Quarter: 2014Q1

REPORT INFORMATION
  Report Type: Spontaneous
  Country: US (occurrence: US)
  Receive Date: 20140122
  Receipt Date: 20140122
  Transmission Date: 20141002
  Serious: Yes (Other)
  Sender: FDA-Public Use
  Company Number: US-JNJFOC-20140108683

PATIENT
  Age: 70 Year
  Sex: Female
  Weight: 90.72 kg

DRUGS (7)
  1. REMICADE [Suspect]
     Indication: PSORIATIC ARTHROPATHY
     Dosage: REMICADE STARTED ATLEAST 8 YEARS AGO
     Route: 042
  2. NEXIUM [Concomitant]
     Indication: GASTROOESOPHAGEAL REFLUX DISEASE
     Route: 048
  3. LEVOTHYROXINE [Concomitant]
     Indication: THYROID DISORDER
     Route: 048
  4. LEXAPRO [Concomitant]
     Indication: DEPRESSION
     Route: 048
     Dates: start: 2005
  5. LEXAPRO [Concomitant]
     Indication: ANXIETY
     Route: 048
     Dates: start: 2005
  6. TRAZODONE [Concomitant]
     Indication: DEPRESSION
     Route: 048
     Dates: start: 2008
  7. PROTONIX [Concomitant]
     Indication: GASTROOESOPHAGEAL REFLUX DISEASE
     Route: 048

REACTIONS (13)
  - Colon cancer [Recovered/Resolved]
  - Knee arthroplasty [Unknown]
  - Dyspnoea [Not Recovered/Not Resolved]
  - Nerve injury [Not Recovered/Not Resolved]
  - Malignant melanoma [Unknown]
  - Rotator cuff repair [Unknown]
  - Infusion related reaction [Unknown]
  - Weight decreased [Unknown]
  - Blood pressure decreased [Unknown]
  - Malaise [Unknown]
  - Nausea [Unknown]
  - Asthenia [Unknown]
  - Abdominal pain upper [Not Recovered/Not Resolved]
